FAERS Safety Report 25584020 (Version 1)
Quarter: 2025Q3

REPORT INFORMATION
  Report Type: Spontaneous
  Country: EU (occurrence: EU)
  Receive Date: 20250721
  Receipt Date: 20250721
  Transmission Date: 20251020
  Serious: Yes (Hospitalization)
  Sender: SANOFI AVENTIS
  Company Number: None

PATIENT
  Age: 84 Year
  Sex: Male
  Weight: 70 kg

DRUGS (2)
  1. CEFOTAXIME SODIUM [Suspect]
     Active Substance: CEFOTAXIME SODIUM
     Indication: Prostatitis Escherichia coli
     Dosage: 1 G, 3 TIMES PER DAY
     Route: 042
     Dates: start: 20250607, end: 20250617
  2. LOVENOX [Suspect]
     Active Substance: ENOXAPARIN SODIUM
     Indication: Thrombosis prophylaxis
     Dosage: 40 MG, QD (40 MG/J)
     Route: 058
     Dates: start: 20250607, end: 20250618

REACTIONS (1)
  - Liver function test increased [Recovering/Resolving]

NARRATIVE: CASE EVENT DATE: 20250610
